FAERS Safety Report 8992002 (Version 2)
Quarter: 2013Q1

REPORT INFORMATION
  Report Type: Spontaneous
  Country: US (occurrence: US)
  Receive Date: 20121231
  Receipt Date: 20130114
  Transmission Date: 20140127
  Serious: Yes (Hospitalization, Other)
  Sender: FDA-Public Use
  Company Number: CHPA2012US025802

PATIENT
  Age: 58 Year
  Sex: Female

DRUGS (8)
  1. VOLTAREN GEL [Suspect]
     Indication: PAIN
     Dosage: UNK, PRN
     Route: 061
     Dates: start: 20110310, end: 201209
  2. PREVACID 24HR 15MG [Suspect]
     Indication: GASTROOESOPHAGEAL REFLUX DISEASE
     Dosage: UNK, UNK
  3. CHOLESTEROL- AND TRIGLYCERIDE REDUCERS [Concomitant]
  4. ANALGESICS [Concomitant]
     Indication: PAIN
  5. NORCO [Concomitant]
  6. ANTIHYPERTENSIVES [Concomitant]
     Indication: HYPERTENSION
  7. LASIX [Concomitant]
  8. PREDNISONE [Concomitant]

REACTIONS (18)
  - Cardiac disorder [Recovered/Resolved]
  - Bronchitis [Recovered/Resolved]
  - Hypertension [Recovered/Resolved]
  - Epistaxis [Recovered/Resolved]
  - Vascular injury [Recovered/Resolved]
  - Dyspnoea [Recovered/Resolved]
  - Drug hypersensitivity [Recovered/Resolved]
  - Glossodynia [Recovered/Resolved]
  - Swollen tongue [Recovered/Resolved]
  - Swelling [Recovered/Resolved]
  - Application site pain [Recovered/Resolved]
  - Application site vesicles [Recovered/Resolved]
  - Application site scar [Not Recovered/Not Resolved]
  - Hyperhidrosis [Recovered/Resolved]
  - Pain [Recovered/Resolved]
  - Off label use [Unknown]
  - Rash [Recovered/Resolved]
  - Drug administered at inappropriate site [Unknown]
